FAERS Safety Report 5133498-4 (Version None)
Quarter: 2006Q4

REPORT INFORMATION
  Report Type: 
  Country: None (occurrence: None)
  Receive Date: 20061024
  Receipt Date: 20061010
  Transmission Date: 20070319
  Serious: Yes (Hospitalization)
  Sender: FDA-Public Use
  Company Number: PHRM2006FR02818

PATIENT
  Age: 20 Year
  Sex: Male

DRUGS (6)
  1. TEGRETOL [Suspect]
     Dosage: 600 MG, QD
     Route: 048
     Dates: start: 20060829, end: 20060906
  2. PIRILENE [Concomitant]
     Indication: DISSEMINATED TUBERCULOSIS
     Dosage: 1.5 G, QD
     Route: 048
     Dates: start: 20060814, end: 20060904
  3. RIMIFON [Concomitant]
     Indication: DISSEMINATED TUBERCULOSIS
     Dosage: 300 MG, QD
     Route: 042
     Dates: start: 20060814, end: 20060904
  4. RIFADIN [Concomitant]
     Dates: start: 20060814
  5. MYAMBUTOL [Concomitant]
     Dates: start: 20060814
  6. AMIKLIN [Concomitant]
     Dates: start: 20060814

REACTIONS (6)
  - ALANINE AMINOTRANSFERASE INCREASED [None]
  - ASPARTATE AMINOTRANSFERASE INCREASED [None]
  - BLOOD ALKALINE PHOSPHATASE INCREASED [None]
  - GAMMA-GLUTAMYLTRANSFERASE INCREASED [None]
  - HEPATITIS [None]
  - PROTHROMBIN LEVEL DECREASED [None]
